FAERS Safety Report 26025300 (Version 1)
Quarter: 2025Q4

REPORT INFORMATION
  Report Type: Report from Study
  Country: EU (occurrence: EU)
  Receive Date: 20251111
  Receipt Date: 20251111
  Transmission Date: 20260117
  Serious: Yes (Hospitalization, Other)
  Sender: INSMED
  Company Number: EU-INSMED, INC.-2025-04875-FR

PATIENT
  Age: 79 Year
  Sex: Female
  Weight: 35 kg

DRUGS (1)
  1. ARIKAYCE [Suspect]
     Active Substance: AMIKACIN
     Indication: Atypical mycobacterial infection
     Dosage: 590 MILLIGRAM, QD
     Route: 055
     Dates: start: 20251010

REACTIONS (9)
  - Syncope [Not Recovered/Not Resolved]
  - Movement disorder [Not Recovered/Not Resolved]
  - Dysgeusia [Unknown]
  - Cough [Unknown]
  - Dyspnoea [Unknown]
  - Productive cough [Unknown]
  - Nausea [Unknown]
  - Dysphonia [Not Recovered/Not Resolved]
  - Intentional underdose [Unknown]

NARRATIVE: CASE EVENT DATE: 20251001
